FAERS Safety Report 6321750-6 (Version None)
Quarter: 2009Q3

REPORT INFORMATION
  Report Type: 
  Country: None (occurrence: None)
  Receive Date: 20090819
  Receipt Date: 20090806
  Transmission Date: 20100115
  Serious: Yes (Death)
  Sender: FDA-Public Use
  Company Number: 007234

PATIENT
  Age: 79 Year
  Sex: Male

DRUGS (8)
  1. PLETAL [Suspect]
     Indication: INTERMITTENT CLAUDICATION
     Dosage: 100 MG BID
     Route: 048
     Dates: start: 20070701, end: 20080226
  2. ACERTYLSALICYLIC ACID (ACERTYLSALICYLIC ACID) [Concomitant]
  3. METOPROLOL TARTRATE [Concomitant]
  4. ISOSORBIDE MONONITRATE [Concomitant]
  5. PRAVASTATIN [Concomitant]
  6. RAMIPRIL [Concomitant]
  7. ACTRAPID HUMAN (INSULIN HUMAN) [Concomitant]
  8. INSUMAN BASAL (INSULIN HUMAN INJECTION, ISOPHANE) [Concomitant]

REACTIONS (2)
  - STRESS [None]
  - SUDDEN CARDIAC DEATH [None]
